FAERS Safety Report 25899110 (Version 1)
Quarter: 2025Q4

REPORT INFORMATION
  Report Type: Spontaneous
  Country: US (occurrence: US)
  Receive Date: 20251009
  Receipt Date: 20251009
  Transmission Date: 20260117
  Serious: Yes (Death)
  Sender: AMGEN
  Company Number: US-AMGEN-USASP2025195922

PATIENT
  Age: 29 Year
  Sex: Female

DRUGS (18)
  1. EPOETIN ALFA [Suspect]
     Active Substance: ERYTHROPOIETIN
     Indication: Iron deficiency anaemia
     Dosage: 20000 UNIT, QD
     Route: 058
  2. EPOETIN ALFA [Suspect]
     Active Substance: ERYTHROPOIETIN
     Dosage: 40000 UNIT, QWK
     Route: 058
  3. DARBEPOETIN ALFA [Suspect]
     Active Substance: DARBEPOETIN ALFA
     Indication: Iron deficiency anaemia
     Dosage: 50 MICROGRAM, QWK THEN AT DAY 32
     Route: 058
  4. ROMIPLOSTIM [Suspect]
     Active Substance: ROMIPLOSTIM
     Indication: Iron deficiency anaemia
     Dosage: 5 MICROGRAM/KILOGRAM, QWK AT DAY 26 DISCONTINUED
     Route: 058
  5. AZACITIDINE [Concomitant]
     Active Substance: AZACITIDINE
     Indication: Cytopenia
     Dosage: 300 MILLIGRAM, QD FOR 7 DAYS AND 75 MILLIGRAM/SQ. METER, QD FOR 5 DAYS
     Route: 040
  6. VENETOCLAX [Concomitant]
     Active Substance: VENETOCLAX
     Indication: Cytopenia
     Dosage: 100 MILLIGRAM, QD FOR 7 DAYS DOSE REDUCED DUE TO POSACONAZOLE
     Route: 048
  7. TRANEXAMIC ACID [Concomitant]
     Active Substance: TRANEXAMIC ACID
     Indication: Heavy menstrual bleeding
     Dosage: 1000 MILLIGRAM, TID
     Route: 048
  8. IRON SUCROSE [Concomitant]
     Active Substance: IRON SUCROSE
     Indication: Iron deficiency anaemia
     Dosage: 100 MILLIGRAM, QD (10DAYS)
     Route: 040
  9. FOLATE SODIUM [Concomitant]
     Active Substance: FOLATE SODIUM
     Indication: Iron deficiency anaemia
     Dosage: 1 MILLIGRAM, QD LATER RESUMED AT DAY 7
     Route: 048
  10. VITAMIN B12 [Concomitant]
     Active Substance: CYANOCOBALAMIN
     Indication: Iron deficiency anaemia
     Dosage: 1000 MICROGRAM, QD LATER AGAIN RESTARTED AT DAY 7
     Route: 048
  11. ACYCLOVIR [Concomitant]
     Active Substance: ACYCLOVIR
     Dosage: 400 MILLIGRAM, BID AGAIN RESTARTED AT DAY 17
     Route: 048
  12. LEVOFLOXACIN [Concomitant]
     Active Substance: LEVOFLOXACIN
     Dosage: 400 MILLIGRAM, QD THEN RESTARTED AT DAY 17, AT DAY 28 AND 32
     Route: 048
  13. POSACONAZOLE [Concomitant]
     Active Substance: POSACONAZOLE
     Dosage: 300 MILLIGRAM, QD THEN RESTARTED AT DAY 17
     Route: 048
  14. LEUPROLIDE [Concomitant]
     Active Substance: LEUPROLIDE
     Dosage: 3.75 MILLIGRAM, QMO
     Route: 023
  15. CEFEPIME [Concomitant]
     Active Substance: CEFEPIME HYDROCHLORIDE
     Dosage: 2 GRAM, Q12H
     Route: 040
  16. VANCOMYCIN [Concomitant]
     Active Substance: VANCOMYCIN
     Dosage: 1 GRAM, Q12H THEN AT DAY 17 DISCONTINUED
     Route: 040
  17. METRONIDAZOLE [Concomitant]
     Active Substance: METRONIDAZOLE
     Dosage: 500 MILLIGRAM, Q8H THEN SWITCHED TO 500 MG EVERY 6 H ORALLLY
     Route: 040
  18. VORICONAZOLE [Concomitant]
     Active Substance: VORICONAZOLE
     Dosage: 100 MILLIGRAM, Q8H THEN AT DAY 32
     Route: 048

REACTIONS (4)
  - Anaemia [Fatal]
  - Drug ineffective [Unknown]
  - White blood cell count decreased [Unknown]
  - Platelet count decreased [Unknown]
